FAERS Safety Report 9791747 (Version 2)
Quarter: 2014Q1

REPORT INFORMATION
  Report Type: Spontaneous
  Country: US (occurrence: US)
  Receive Date: 20140102
  Receipt Date: 20140102
  Transmission Date: 20141002
  Serious: Yes (Other)
  Sender: FDA-Public Use
  Company Number: US-BEH-2011028545

PATIENT
  Age: 30 Year
  Sex: Female
  Weight: 92 kg

DRUGS (12)
  1. ZEMAIRA [Suspect]
     Indication: ALPHA-1 ANTI-TRYPSIN DEFICIENCY
     Dosage: WEEKLY INFUSION SINCE JAN-2011
     Route: 042
  2. ZEMAIRA [Suspect]
     Route: 042
  3. ZOLOFT [Concomitant]
  4. MULTIVITAMIN [Concomitant]
  5. DIPHENHYDRAMINE [Concomitant]
  6. SODIUM CHLORIDE [Concomitant]
  7. EPIPEN [Concomitant]
  8. LMX [Concomitant]
  9. HYDROCORTISONE ACETATE [Concomitant]
  10. LEVOTHYROXINE [Concomitant]
  11. CYTOMEL [Concomitant]
  12. FLEXERIL [Concomitant]

REACTIONS (14)
  - Adrenal insufficiency [Unknown]
  - Immobilisation prolonged [Unknown]
  - Bed rest [Unknown]
  - Malaise [Unknown]
  - Influenza like illness [Recovered/Resolved]
  - Sinusitis [Recovered/Resolved]
  - Flushing [Recovered/Resolved]
  - Fatigue [Recovered/Resolved]
  - Pain [Recovered/Resolved]
  - Bronchitis chronic [Unknown]
  - Malaise [Unknown]
  - Chest pain [Unknown]
  - Dyspnoea [Unknown]
  - Wheezing [Unknown]
